FAERS Safety Report 16386935 (Version 1)
Quarter: 2019Q2

REPORT INFORMATION
  Report Type: Spontaneous
  Country: IL (occurrence: IL)
  Receive Date: 20190604
  Receipt Date: 20190604
  Transmission Date: 20190711
  Serious: Yes (Other)
  Sender: FDA-Public Use
  Company Number: IL-DEXPHARM-20190388

PATIENT
  Age: 87 Year
  Sex: Female

DRUGS (1)
  1. OMEPRADEX [Suspect]
     Active Substance: OMEPRAZOLE

REACTIONS (1)
  - Hypomagnesaemia [Unknown]
